FAERS Safety Report 5211455-7 (Version None)
Quarter: 2006Q4

REPORT INFORMATION
  Report Type: 
  Country: None (occurrence: None)
  Receive Date: 20061115
  Receipt Date: 20060815
  Transmission Date: 20070319
  Serious: No
  Sender: FDA-Public Use
  Company Number: 200616831US

PATIENT
  Sex: Female

DRUGS (2)
  1. APIDRA [Suspect]
  2. LANTUS [Concomitant]

REACTIONS (2)
  - BLOOD GLUCOSE DECREASED [None]
  - WEIGHT INCREASED [None]
